FAERS Safety Report 7864105-5 (Version None)
Quarter: 2011Q4

REPORT INFORMATION
  Report Type: 
  Country: None (occurrence: None)
  Receive Date: 20111028
  Receipt Date: 20111019
  Transmission Date: 20120403
  Serious: Yes (Hospitalization, Other)
  Sender: FDA-Public Use
  Company Number: TR-JNJFOC-20111009763

PATIENT
  Sex: Female

DRUGS (2)
  1. DURAGESIC-100 [Suspect]
     Route: 062
  2. DURAGESIC-100 [Suspect]
     Indication: PAIN
     Route: 062
     Dates: start: 20110901

REACTIONS (6)
  - CONFUSIONAL STATE [None]
  - NAUSEA [None]
  - VOMITING [None]
  - SOMNOLENCE [None]
  - HYPOTHERMIA [None]
  - ACCIDENTAL OVERDOSE [None]
